FAERS Safety Report 5846483-1 (Version None)
Quarter: 2008Q3

REPORT INFORMATION
  Report Type: 
  Country: None (occurrence: None)
  Receive Date: 20080815
  Receipt Date: 20080808
  Transmission Date: 20090109
  Serious: Yes (Other)
  Sender: FDA-Public Use
  Company Number: BR-AVENTIS-200813515GDDC

PATIENT
  Age: 35 Year
  Sex: Female
  Weight: 57 kg

DRUGS (5)
  1. LANTUS [Suspect]
     Route: 058
     Dates: start: 20070601
  2. PURAN T4 [Concomitant]
     Indication: HYPERTHYROIDISM
     Dosage: DOSE: (FASTING)
     Route: 048
     Dates: start: 19980101
  3. PANTOPRAZOLE [Concomitant]
     Indication: GASTRITIS
     Dosage: DOSE: 1 TABLET IN FASTING
     Route: 048
     Dates: start: 20050101
  4. GAMALINE/BRA [Concomitant]
     Dates: start: 20060101
  5. NOVORAPID [Concomitant]
     Route: 058

REACTIONS (16)
  - ASTHENIA [None]
  - BLOOD PRESSURE DECREASED [None]
  - BURNING SENSATION [None]
  - DIARRHOEA [None]
  - DIZZINESS [None]
  - FLATULENCE [None]
  - HEADACHE [None]
  - HYPERGLYCAEMIA [None]
  - HYPOGLYCAEMIA [None]
  - INFLAMMATION [None]
  - MUSCLE RIGIDITY [None]
  - SYNCOPE [None]
  - THINKING ABNORMAL [None]
  - TREMOR [None]
  - VISION BLURRED [None]
  - WEIGHT INCREASED [None]
